FAERS Safety Report 8495606-7 (Version None)
Quarter: 2012Q3

REPORT INFORMATION
  Report Type: 
  Country: None (occurrence: None)
  Receive Date: 20120709
  Receipt Date: 20120628
  Transmission Date: 20120928
  Serious: Yes (Death)
  Sender: FDA-Public Use
  Company Number: GB-ROCHE-1082827

PATIENT
  Sex: Female
  Weight: 43 kg

DRUGS (3)
  1. MABTHERA [Suspect]
     Indication: RHEUMATOID ARTHRITIS
     Dosage: DATE OF LAST DOSE PRIOR TO SAE: 15/OCT/2005
     Dates: start: 20040915
  2. STEROIDS - UNKNOWN TYPE [Concomitant]
  3. METHOTREXATE [Concomitant]

REACTIONS (6)
  - PNEUMONIA [None]
  - DEMENTIA ALZHEIMER'S TYPE [None]
  - CHRONIC OBSTRUCTIVE PULMONARY DISEASE [None]
  - UROSEPSIS [None]
  - MYOCARDIAL INFARCTION [None]
  - THROMBOCYTOPENIA [None]
